FAERS Safety Report 7482359-4 (Version None)
Quarter: 2011Q2

REPORT INFORMATION
  Report Type: 
  Country: None (occurrence: None)
  Receive Date: 20110516
  Receipt Date: 20110511
  Transmission Date: 20111010
  Serious: No
  Sender: FDA-Public Use
  Company Number: US-PFIZER INC-2011101479

PATIENT
  Sex: Male
  Weight: 83.9 kg

DRUGS (5)
  1. PROCARDIA XL [Suspect]
     Indication: HYPERTENSION
     Dosage: 60 MG, 2X/DAY
     Route: 048
     Dates: start: 20110301
  2. SODIUM BICARBONATE [Concomitant]
     Dosage: UNK
  3. CLONIDINE [Concomitant]
     Dosage: 0.3 MG, 3X/DAY
  4. SEVELAMER [Concomitant]
     Dosage: UNK
  5. METOPROLOL [Concomitant]
     Dosage: 50 MG, 2X/DAY

REACTIONS (1)
  - MEDICATION RESIDUE [None]
